FAERS Safety Report 13939725 (Version 1)
Quarter: 2017Q3

REPORT INFORMATION
  Report Type: Spontaneous
  Country: US (occurrence: US)
  Receive Date: 20170906
  Receipt Date: 20170906
  Transmission Date: 20171127
  Serious: Yes (Other)
  Sender: FDA-Public Use
  Company Number: None

PATIENT
  Age: 2 Year
  Sex: Male
  Weight: 14.4 kg

DRUGS (1)
  1. MONTELUKAST [Suspect]
     Active Substance: MONTELUKAST SODIUM
     Indication: NASAL CONGESTION

REACTIONS (4)
  - Screaming [None]
  - Nightmare [None]
  - Middle insomnia [None]
  - Crying [None]

NARRATIVE: CASE EVENT DATE: 20170731
